FAERS Safety Report 4808376-8 (Version None)
Quarter: 2005Q4

REPORT INFORMATION
  Report Type: 
  Country: None (occurrence: None)
  Receive Date: 20051021
  Receipt Date: 20040120
  Transmission Date: 20060501
  Serious: No
  Sender: FDA-Public Use
  Company Number: FR_040103462

PATIENT
  Age: 92 Year
  Sex: Male

DRUGS (5)
  1. ZYPREXA [Suspect]
     Dosage: 10 MG/DAY
     Dates: start: 20031101
  2. SINTROM [Concomitant]
  3. ATARAX [Concomitant]
  4. FERROUS SULFATE TAB [Concomitant]
  5. AUGMENTIN '125' [Concomitant]

REACTIONS (2)
  - LEUKOPENIA [None]
  - THROMBOCYTOPENIA [None]
